FAERS Safety Report 7321587-5 (Version None)
Quarter: 2011Q1

REPORT INFORMATION
  Report Type: 
  Country: None (occurrence: None)
  Receive Date: 20110228
  Receipt Date: 20100616
  Transmission Date: 20110831
  Serious: No
  Sender: FDA-Public Use
  Company Number: A0867695A

PATIENT
  Age: 63 Year
  Sex: Female

DRUGS (2)
  1. VALACYCLOVIR HYDROCHLORIDE [Suspect]
     Dosage: 500MG VARIABLE DOSE
     Route: 048
  2. CONCURRENT MEDICATIONS [Concomitant]

REACTIONS (2)
  - DRUG INEFFECTIVE [None]
  - FEELING ABNORMAL [None]
